FAERS Safety Report 19091440 (Version 1)
Quarter: 2021Q2

REPORT INFORMATION
  Report Type: Other
  Country: IT (occurrence: IT)
  Receive Date: 20210405
  Receipt Date: 20210405
  Transmission Date: 20210717
  Serious: Yes (Other)
  Sender: FDA-Public Use
  Company Number: IT-ROCHE-1888283

PATIENT

DRUGS (5)
  1. MYCOPHENOLATE MOFETIL. [Suspect]
     Active Substance: MYCOPHENOLATE MOFETIL
     Indication: IMMUNOSUPPRESSION
     Dosage: 15MG/KG IN 3 DAILY DOSES
     Route: 065
  2. GANCICLOVIR. [Concomitant]
     Active Substance: GANCICLOVIR
  3. CYCLOPHOSPHAMIDE. [Suspect]
     Active Substance: CYCLOPHOSPHAMIDE
     Indication: IMMUNOSUPPRESSION
     Route: 042
  4. TACROLIMUS. [Suspect]
     Active Substance: TACROLIMUS
     Indication: IMMUNOSUPPRESSION
     Route: 065
  5. VALGANCICLOVIR. [Concomitant]
     Active Substance: VALGANCICLOVIR

REACTIONS (27)
  - Sepsis [Unknown]
  - Staphylococcal infection [Unknown]
  - Pyrexia [Unknown]
  - Escherichia infection [Unknown]
  - Hepatitis B reactivation [Unknown]
  - Hyperthyroidism [Unknown]
  - Acinetobacter infection [Unknown]
  - Enterococcal infection [Unknown]
  - Bronchopulmonary aspergillosis [Unknown]
  - Cataract [Unknown]
  - Hepatic enzyme increased [Unknown]
  - Squamous cell carcinoma of the oral cavity [Unknown]
  - Venoocclusive liver disease [Unknown]
  - Diabetes mellitus [Unknown]
  - Hypertension [Unknown]
  - Hepatitis C [Unknown]
  - Mucosal inflammation [Unknown]
  - Cytomegalovirus infection reactivation [Unknown]
  - Mucormycosis [Unknown]
  - Pseudomonas infection [Unknown]
  - Klebsiella infection [Unknown]
  - Hyperbilirubinaemia [Unknown]
  - Cystitis haemorrhagic [Unknown]
  - Dyslipidaemia [Unknown]
  - Epstein-Barr virus infection [Unknown]
  - Hypothyroidism [Unknown]
  - BK virus infection [Unknown]
